FAERS Safety Report 22334891 (Version 1)
Quarter: 2023Q2

REPORT INFORMATION
  Report Type: Spontaneous
  Country: None (occurrence: CN)
  Receive Date: 20230518
  Receipt Date: 20230518
  Transmission Date: 20230722
  Serious: Yes (Other)
  Sender: FDA-Public Use
  Company Number: CN-Hisun Pharmaceuticals-2141631

PATIENT
  Age: 22 Year
  Sex: Male

DRUGS (1)
  1. CLADRIBINE [Suspect]
     Active Substance: CLADRIBINE
     Indication: Xanthomatosis
     Route: 042

REACTIONS (3)
  - Leukopenia [Recovered/Resolved]
  - Alanine aminotransferase increased [Recovered/Resolved]
  - Aspartate aminotransferase increased [Recovered/Resolved]
